FAERS Safety Report 8279350-7 (Version None)
Quarter: 2012Q2

REPORT INFORMATION
  Report Type: 
  Country: None (occurrence: None)
  Receive Date: 20120412
  Receipt Date: 20111128
  Transmission Date: 20120825
  Serious: No
  Sender: FDA-Public Use
  Company Number: US-ASTRAZENECA-2011SE69424

PATIENT
  Age: 55 Year
  Sex: Female

DRUGS (1)
  1. NEXIUM [Suspect]
     Route: 048

REACTIONS (7)
  - DYSPHONIA [None]
  - RHINITIS [None]
  - PYREXIA [None]
  - NASOPHARYNGITIS [None]
  - BLOOD CHOLESTEROL ABNORMAL [None]
  - DIABETES MELLITUS [None]
  - HYPERSENSITIVITY [None]
